FAERS Safety Report 7008787-9 (Version None)
Quarter: 2010Q3

REPORT INFORMATION
  Report Type: 
  Country: None (occurrence: None)
  Receive Date: 20100921
  Receipt Date: 20100903
  Transmission Date: 20110219
  Serious: Yes (Other)
  Sender: FDA-Public Use
  Company Number: UK-ACCORD-003443

PATIENT
  Age: 64 Year
  Sex: Male

DRUGS (1)
  1. MITOMYCIN [Suspect]
     Indication: TRABECULECTOMY

REACTIONS (4)
  - BLEBITIS [None]
  - DISEASE RECURRENCE [None]
  - IRIDOCYCLITIS [None]
  - OFF LABEL USE [None]
